FAERS Safety Report 4278934-0 (Version None)
Quarter: 2004Q1

REPORT INFORMATION
  Report Type: 
  Country: None (occurrence: None)
  Receive Date: 20040126
  Receipt Date: 20010918
  Transmission Date: 20041129
  Serious: Yes (Hospitalization)
  Sender: FDA-Public Use
  Company Number: ES-ROCHE-269715

PATIENT
  Age: 35 Year
  Sex: Male
  Weight: 66 kg

DRUGS (7)
  1. DACLIZUMAB [Suspect]
     Route: 042
     Dates: start: 20010811, end: 20010811
  2. DACLIZUMAB [Suspect]
     Route: 042
     Dates: start: 20010824, end: 20011005
  3. MYCOPHENOLATE MOFETIL [Suspect]
     Route: 048
     Dates: start: 20010811
  4. PREDNISONE [Concomitant]
     Dosage: STARTED AT 12.5 MG DAILY.  REDUCED TO 10 MG ON 9 NOV 01 AND INCREASED TO 15 MG ON 22 DEC 01.
     Dates: start: 20010907
  5. RANITIDINE [Concomitant]
     Dates: start: 20010813
  6. CSA [Concomitant]
     Dosage: ON 13 DEC 2001, IT WAS REPORTED THAT A REDUCTION OF THE CSA THERAPY WAS STARTED - 125 MG.  IT WAS I+
     Dates: end: 20011220
  7. AMLODIPINO [Concomitant]
     Dates: start: 20011030

REACTIONS (4)
  - ABDOMINAL PAIN UPPER [None]
  - BLOOD CREATININE INCREASED [None]
  - CYTOMEGALOVIRUS INFECTION [None]
  - PLATELET COUNT DECREASED [None]
